FAERS Safety Report 18725268 (Version 49)
Quarter: 2024Q4

REPORT INFORMATION
  Report Type: Report from Study
  Country: CL (occurrence: CL)
  Receive Date: 20210111
  Receipt Date: 20241209
  Transmission Date: 20250115
  Serious: Yes (Life-Threatening, Other)
  Sender: NOVARTIS
  Company Number: NVSC2020CL347958

PATIENT
  Age: 81 Year
  Sex: Female

DRUGS (35)
  1. KISQALI [Suspect]
     Active Substance: RIBOCICLIB
     Indication: Breast cancer
     Dosage: 600 MG, QD (STARTED WITH 3)
     Route: 048
     Dates: start: 20201211
  2. KISQALI [Suspect]
     Active Substance: RIBOCICLIB
     Dosage: 1 DOSAGE FORM (200 MG), QD
     Route: 048
  3. KISQALI [Suspect]
     Active Substance: RIBOCICLIB
     Dosage: 200 MG, QD
     Route: 048
  4. KISQALI [Suspect]
     Active Substance: RIBOCICLIB
     Dosage: 200 MG, QD
     Route: 048
  5. KISQALI [Suspect]
     Active Substance: RIBOCICLIB
     Dosage: 200 MG, QD
     Route: 048
  6. KISQALI [Suspect]
     Active Substance: RIBOCICLIB
     Dosage: 200 MG, QD
     Route: 048
  7. KISQALI [Suspect]
     Active Substance: RIBOCICLIB
     Dosage: 200 MG, QD
     Route: 048
  8. KISQALI [Suspect]
     Active Substance: RIBOCICLIB
     Dosage: 200 MG, QD
     Route: 048
  9. KISQALI [Suspect]
     Active Substance: RIBOCICLIB
     Dosage: 200 MG, QD
     Route: 048
  10. KISQALI [Suspect]
     Active Substance: RIBOCICLIB
     Dosage: 600 MG
     Route: 048
     Dates: start: 2020
  11. KISQALI [Suspect]
     Active Substance: RIBOCICLIB
     Dosage: 200 MG, QD
     Route: 048
  12. KISQALI [Suspect]
     Active Substance: RIBOCICLIB
     Dosage: 400 MG, BID (STARTED 2)
     Route: 048
  13. KISQALI [Suspect]
     Active Substance: RIBOCICLIB
     Dosage: 400 MG, QD
     Route: 048
  14. KISQALI [Suspect]
     Active Substance: RIBOCICLIB
     Dosage: 200 MG
     Route: 048
     Dates: start: 20230120
  15. KISQALI [Suspect]
     Active Substance: RIBOCICLIB
     Dosage: 200 MG (STARTED THE CYCLE AND  BOX LASTS FOR 3 CYCLES)
     Route: 048
     Dates: start: 20230217
  16. KISQALI [Suspect]
     Active Substance: RIBOCICLIB
     Dosage: 1 DOSAGE FORM (200 MG)
     Route: 048
     Dates: start: 20230414
  17. KISQALI [Suspect]
     Active Substance: RIBOCICLIB
     Dosage: 200 MG
     Route: 048
     Dates: start: 20230512
  18. KISQALI [Suspect]
     Active Substance: RIBOCICLIB
     Dosage: 200 MG, QD
     Route: 048
     Dates: start: 20230726
  19. KISQALI [Suspect]
     Active Substance: RIBOCICLIB
     Dosage: 200 MG, QD
     Route: 048
  20. KISQALI [Suspect]
     Active Substance: RIBOCICLIB
     Dosage: 200 MG, QD
     Route: 048
     Dates: start: 20231215
  21. KISQALI [Suspect]
     Active Substance: RIBOCICLIB
     Dosage: 200 MG, QD
     Route: 048
     Dates: start: 20240112
  22. KISQALI [Suspect]
     Active Substance: RIBOCICLIB
     Dosage: 1 DOSAGE FORM
     Route: 048
     Dates: start: 20240209
  23. KISQALI [Suspect]
     Active Substance: RIBOCICLIB
     Dosage: 200 MG, QD
     Route: 048
     Dates: start: 20240312
  24. KISQALI [Suspect]
     Active Substance: RIBOCICLIB
     Dosage: 200 MG, QD (1 TABLET)
     Route: 048
     Dates: start: 20240410
  25. KISQALI [Suspect]
     Active Substance: RIBOCICLIB
     Dosage: 200 MG, QD (1 TABLET)
     Route: 048
     Dates: start: 20240509
  26. KISQALI [Suspect]
     Active Substance: RIBOCICLIB
     Dosage: 200 MG, QD (1 TABLET)
     Route: 048
     Dates: start: 20240529
  27. KISQALI [Suspect]
     Active Substance: RIBOCICLIB
     Dosage: 1 DOSAGE FORM, QD
     Route: 048
     Dates: start: 20240606
  28. KISQALI [Suspect]
     Active Substance: RIBOCICLIB
     Dosage: 1 DOSAGE FORM, QD
     Route: 048
     Dates: start: 20240706
  29. KISQALI [Suspect]
     Active Substance: RIBOCICLIB
     Dosage: 1 DOSAGE FORM, (1 TABLET, 200 MG)
     Route: 048
     Dates: start: 20240804
  30. KISQALI [Suspect]
     Active Substance: RIBOCICLIB
     Dosage: 1 DOSAGE FORM (200 MG), QD
     Route: 048
     Dates: start: 20240808
  31. KISQALI [Suspect]
     Active Substance: RIBOCICLIB
     Dosage: 1 DOSAGE FORM, QD (200 MG, QD)
     Route: 048
     Dates: start: 20241203
  32. FULVESTRANT [Suspect]
     Active Substance: FULVESTRANT
     Indication: Product used for unknown indication
     Dosage: UNK, QMO
     Route: 065
  33. FULVESTRANT [Suspect]
     Active Substance: FULVESTRANT
     Dosage: 50 MG/ML (2 UNITS), Q4W
     Route: 065
     Dates: start: 20240808
  34. ESOMEPRAZOLE [Concomitant]
     Active Substance: ESOMEPRAZOLE
     Indication: Product used for unknown indication
     Dosage: UNK
     Route: 065
  35. BLISTEX [Concomitant]
     Active Substance: BENZOCAINE
     Indication: Product used for unknown indication
     Dosage: UNK
     Route: 065

REACTIONS (30)
  - Feeling abnormal [Not Recovered/Not Resolved]
  - Pneumonitis [Unknown]
  - Liver injury [Unknown]
  - Liver disorder [Unknown]
  - Gastrointestinal disorder [Unknown]
  - Alopecia [Unknown]
  - Ventricular extrasystoles [Unknown]
  - Electrocardiogram abnormal [Unknown]
  - Pain [Unknown]
  - Eating disorder [Not Recovered/Not Resolved]
  - Herpes virus infection [Not Recovered/Not Resolved]
  - Weight increased [Unknown]
  - Movement disorder [Unknown]
  - Nephropathy [Unknown]
  - Weight decreased [Recovering/Resolving]
  - Red blood cell count decreased [Unknown]
  - Nasopharyngitis [Recovered/Resolved]
  - Nausea [Unknown]
  - Vomiting [Unknown]
  - White blood cell count decreased [Recovering/Resolving]
  - Rash macular [Recovered/Resolved with Sequelae]
  - Erythema [Unknown]
  - Blood creatinine abnormal [Unknown]
  - Malaise [Unknown]
  - Drug intolerance [Recovered/Resolved with Sequelae]
  - Drug ineffective [Unknown]
  - Inappropriate schedule of product administration [Unknown]
  - Oral pain [Unknown]
  - Ill-defined disorder [Unknown]
  - Ischaemia [Unknown]

NARRATIVE: CASE EVENT DATE: 20210106
